FAERS Safety Report 7249078-0 (Version None)
Quarter: 2011Q1

REPORT INFORMATION
  Report Type: 
  Country: None (occurrence: None)
  Receive Date: 20110128
  Receipt Date: 20100914
  Transmission Date: 20110831
  Serious: Yes (Other)
  Sender: FDA-Public Use
  Company Number: US-BAYER-201028981NA

PATIENT
  Sex: Male
  Weight: 119.73 kg

DRUGS (30)
  1. OMNISCAN [Suspect]
     Indication: BRAIN STEM SYNDROME
     Dosage: UNK
     Route: 042
     Dates: start: 20010227, end: 20010227
  2. MULTIHANCE [Suspect]
     Indication: IMAGING PROCEDURE
  3. MULTI-VITAMINS [Concomitant]
  4. PREDNISONE [Concomitant]
     Dosage: 120 MG, QD
  5. OMNISCAN [Suspect]
     Indication: NUCLEAR MAGNETIC RESONANCE IMAGING BRAIN
     Dosage: UNK
     Dates: start: 19991206, end: 19991206
  6. OPTIMARK [Suspect]
     Indication: IMAGING PROCEDURE
     Dosage: UNK
     Dates: start: 20040923, end: 20040923
  7. MELPHALAN [Concomitant]
     Dosage: 25 MG, QD
  8. LASIX [Concomitant]
     Dosage: 80 MG, QD
  9. AVAPRO [Concomitant]
     Dosage: 10 MG, QD
     Dates: start: 20020206
  10. ANTIHYPERTENSIVES [Concomitant]
  11. GADOLINIUM IN UNSPECIFIED DRUG [Suspect]
     Indication: NUCLEAR MAGNETIC RESONANCE IMAGING BRAIN
     Dosage: UNK
     Dates: start: 20020815, end: 20020815
  12. GADOLINIUM IN UNSPECIFIED DRUG [Suspect]
     Indication: NUCLEAR MAGNETIC RESONANCE IMAGING
     Dosage: UNK
     Dates: start: 20021126, end: 20021126
  13. OMNISCAN [Suspect]
     Indication: SLEEP APNOEA SYNDROME
     Dosage: UNK
     Route: 042
     Dates: start: 20001016, end: 20001016
  14. K-DUR [Concomitant]
     Dosage: 30 MG, BID
  15. GADOLINIUM IN UNSPECIFIED DRUG [Suspect]
     Dosage: UNK
     Dates: start: 20070717, end: 20070717
  16. MAGNEVIST [Suspect]
     Indication: NUCLEAR MAGNETIC RESONANCE IMAGING BRAIN
     Dosage: UNK
     Dates: start: 20020205, end: 20020205
  17. OMNISCAN [Suspect]
     Indication: NUCLEAR MAGNETIC RESONANCE IMAGING
     Dosage: UNK
     Dates: start: 20010815, end: 20010815
  18. OMNISCAN [Suspect]
     Indication: HEADACHE
     Dosage: UNK
     Dates: start: 20011211, end: 20011211
  19. PROCRIT [Concomitant]
     Dosage: 400000 U, EVERY WEEK
     Route: 058
  20. COMPAZINE [Concomitant]
     Dosage: UNK UNK, PRN
  21. PROHANCE [Suspect]
     Indication: IMAGING PROCEDURE
  22. ANTIBIOTICS [Concomitant]
  23. PLENDIL [Concomitant]
     Dosage: 5 MG, QD
     Dates: start: 20100206
  24. OMNISCAN [Suspect]
     Dosage: UNK
     Dates: start: 20100227, end: 20100227
  25. MAGNEVIST [Suspect]
     Dosage: 20 ML, ONCE
     Dates: start: 20020508, end: 20020508
  26. OMNISCAN [Suspect]
     Indication: ABDOMEN SCAN
     Dosage: 20 ML, ONCE
     Route: 042
     Dates: start: 20010730, end: 20010730
  27. IRON [IRON] [Concomitant]
  28. NEXIUM [Concomitant]
     Dosage: 40 MG, PRN
     Dates: start: 20020206
  29. ZAROXOLYN [Concomitant]
     Dosage: 10 MG, QD
     Dates: start: 20020206
  30. IMIPRAMINE [Concomitant]
     Dosage: 25 MG, QS
     Dates: start: 20020206

REACTIONS (10)
  - SKIN INDURATION [None]
  - JOINT RANGE OF MOTION DECREASED [None]
  - MOBILITY DECREASED [None]
  - NEPHROGENIC SYSTEMIC FIBROSIS [None]
  - SKIN DISCOLOURATION [None]
  - OEDEMA [None]
  - DRY SKIN [None]
  - PRURITUS GENERALISED [None]
  - JOINT STIFFNESS [None]
  - RASH MACULO-PAPULAR [None]
